FAERS Safety Report 25333839 (Version 2)
Quarter: 2025Q2

REPORT INFORMATION
  Report Type: Report from Study
  Country: US (occurrence: US)
  Receive Date: 20250520
  Receipt Date: 20250526
  Transmission Date: 20250716
  Serious: No
  Sender: MALLINCKRODT
  Company Number: US-MALLINCKRODT-MNK202502455

PATIENT
  Age: 54 Year
  Sex: Female
  Weight: 157 kg

DRUGS (2)
  1. CORTICOTROPIN [Suspect]
     Active Substance: CORTICOTROPIN
     Indication: Proteinuria
     Dates: start: 20250412, end: 202504
  2. CORTICOTROPIN [Suspect]
     Active Substance: CORTICOTROPIN
     Route: 058
     Dates: start: 202504

REACTIONS (6)
  - Feeling abnormal [Unknown]
  - Chest pain [Recovering/Resolving]
  - Nausea [Unknown]
  - Dizziness [Recovering/Resolving]
  - Hypertension [Unknown]
  - Cushingoid [Unknown]

NARRATIVE: CASE EVENT DATE: 20250101
